FAERS Safety Report 5426391-0 (Version None)
Quarter: 2007Q3

REPORT INFORMATION
  Report Type: 
  Country: None (occurrence: None)
  Receive Date: 20070827
  Receipt Date: 20070816
  Transmission Date: 20080115
  Serious: Yes (Other)
  Sender: FDA-Public Use
  Company Number: US-PFIZER INC-2005086031

PATIENT
  Sex: Male
  Weight: 71.7 kg

DRUGS (3)
  1. VIAGRA [Suspect]
     Indication: ERECTILE DYSFUNCTION
     Route: 065
  2. VIOXX [Concomitant]
     Route: 065
  3. IBUPROFEN [Concomitant]
     Route: 065

REACTIONS (3)
  - DRUG INEFFECTIVE [None]
  - NON-HODGKIN'S LYMPHOMA [None]
  - SPLENOMEGALY [None]
